FAERS Safety Report 9959857 (Version 1)
Quarter: 2014Q1

REPORT INFORMATION
  Report Type: Spontaneous
  Country: US (occurrence: None)
  Receive Date: 20140228
  Receipt Date: 20140228
  Transmission Date: 20141002
  Serious: Yes (Other)
  Sender: FDA-Public Use
  Company Number: ADR-2012-00638

PATIENT
  Sex: Female

DRUGS (3)
  1. LIORESAL INTRATHECAL (BACLOFEN INJECTION) [Suspect]
     Indication: PAIN
     Dosage: DAY
  2. MORPHINE [Suspect]
     Dosage: 0.22018 MG/DAY
  3. FENTANYL [Suspect]
     Dosage: DAY
     Route: 037

REACTIONS (4)
  - Muscle spasms [None]
  - Drug withdrawal syndrome [None]
  - Dystonia [None]
  - Incorrect dose administered by device [None]
